FAERS Safety Report 7739703-X (Version None)
Quarter: 2011Q3

REPORT INFORMATION
  Report Type: 
  Country: None (occurrence: None)
  Receive Date: 20110909
  Receipt Date: 20110826
  Transmission Date: 20111222
  Serious: Yes (Hospitalization, Other)
  Sender: FDA-Public Use
  Company Number: US-JNJFOC-20110812804

PATIENT
  Sex: Male
  Weight: 81.19 kg

DRUGS (7)
  1. DURAGESIC-100 [Suspect]
     Indication: PAIN
     Route: 062
     Dates: end: 20090101
  2. ACIPHEX [Suspect]
     Indication: GASTROOESOPHAGEAL REFLUX DISEASE
     Route: 048
     Dates: end: 20100101
  3. LIPITOR [Concomitant]
     Indication: BLOOD CHOLESTEROL
     Route: 048
  4. DIAZEPAM [Concomitant]
     Indication: NERVOUS SYSTEM DISORDER
     Route: 048
  5. CITALOPRAM HYDROBROMIDE [Concomitant]
     Indication: NERVOUS SYSTEM DISORDER
     Route: 048
  6. DURAGESIC-100 [Suspect]
     Route: 062
     Dates: start: 20090101, end: 20110401
  7. LISINOPRIL [Concomitant]
     Indication: HYPERTENSION
     Route: 048

REACTIONS (9)
  - ADVERSE EVENT [None]
  - HYPERSOMNIA [None]
  - FALL [None]
  - HYPERCHLORHYDRIA [None]
  - HYPOAESTHESIA [None]
  - PRODUCT QUALITY ISSUE [None]
  - PERIPHERAL ARTERIAL OCCLUSIVE DISEASE [None]
  - ACTIVITIES OF DAILY LIVING IMPAIRED [None]
  - GAIT DISTURBANCE [None]
